FAERS Safety Report 8079377-4 (Version None)
Quarter: 2012Q1

REPORT INFORMATION
  Report Type: 
  Country: None (occurrence: None)
  Receive Date: 20120128
  Receipt Date: 20110822
  Transmission Date: 20120608
  Serious: No
  Sender: FDA-Public Use
  Company Number: US-ABBOTT-11P-163-0848500-00

PATIENT
  Sex: Male
  Weight: 106.69 kg

DRUGS (5)
  1. HUMIRA [Suspect]
     Indication: PSORIASIS
     Route: 058
     Dates: start: 20110501
  2. MULTI-VITAMINS [Concomitant]
     Indication: PROPHYLAXIS
  3. ASCORBIC ACID [Concomitant]
     Indication: VITAMIN SUPPLEMENTATION
  4. GLUCOSAMINE [Concomitant]
     Indication: SURGERY
  5. HYDROQUINONE [Concomitant]
     Indication: SKIN DISCOLOURATION

REACTIONS (10)
  - IMPAIRED HEALING [None]
  - POOR QUALITY DRUG ADMINISTERED [None]
  - PSORIASIS [None]
  - INCORRECT STORAGE OF DRUG [None]
  - WOUND DRAINAGE [None]
  - PYREXIA [None]
  - ORAL HERPES [None]
  - LOCAL SWELLING [None]
  - PRURITUS [None]
  - POST PROCEDURAL HAEMORRHAGE [None]
